FAERS Safety Report 6613201-9 (Version None)
Quarter: 2010Q1

REPORT INFORMATION
  Report Type: 
  Country: None (occurrence: None)
  Receive Date: 20100304
  Receipt Date: 20100218
  Transmission Date: 20100710
  Serious: Yes (Hospitalization)
  Sender: FDA-Public Use
  Company Number: US-SOLVAY-00210000609

PATIENT
  Age: 20524 Day
  Sex: Female
  Weight: 100 kg

DRUGS (3)
  1. HYOSOMAX [Concomitant]
     Indication: IRRITABLE BOWEL SYNDROME
     Dosage: DAILY DOSE:  UNKNOWN
     Route: 048
  2. CREON DR [Suspect]
     Indication: PANCREATITIS CHRONIC
     Dosage: DAILY DOSE: 1 DOSAGE FORM; FREQUENCY: ONCE
     Route: 048
     Dates: start: 20100123, end: 20100123
  3. UNKNOWN ACID REFLUX MEDICATION [Concomitant]
     Indication: GASTROOESOPHAGEAL REFLUX DISEASE
     Dosage: DAILY DOSE:  UNKNOWN
     Route: 048

REACTIONS (3)
  - HAEMATEMESIS [None]
  - NAUSEA [None]
  - VOMITING [None]
